FAERS Safety Report 5843302-4 (Version None)
Quarter: 2008Q3

REPORT INFORMATION
  Report Type: 
  Country: None (occurrence: None)
  Receive Date: 20080812
  Receipt Date: 20080812
  Transmission Date: 20090109
  Serious: Yes (Life-Threatening, Hospitalization, Other)
  Sender: FDA-Public Use
  Company Number: None

PATIENT
  Age: 78 Year
  Sex: Male
  Weight: 63.5036 kg

DRUGS (2)
  1. PLAVIX [Suspect]
     Indication: CORONARY ARTERIAL STENT INSERTION
     Dosage: 75 MG  DAILY PO
     Route: 048
     Dates: start: 20060111, end: 20080611
  2. ASPIRIN [Suspect]
     Indication: CORONARY ARTERIAL STENT INSERTION
     Dosage: 81MG DAILY PO
     Route: 048
     Dates: start: 20060111, end: 20080611

REACTIONS (9)
  - ANAEMIA [None]
  - ASTHENIA [None]
  - DIARRHOEA [None]
  - ERECTILE DYSFUNCTION [None]
  - EXERCISE TOLERANCE DECREASED [None]
  - GAIT DISTURBANCE [None]
  - HAEMORRHAGE [None]
  - POOR QUALITY SLEEP [None]
  - RESTLESS LEGS SYNDROME [None]
